FAERS Safety Report 21396783 (Version 2)
Quarter: 2022Q4

REPORT INFORMATION
  Report Type: Spontaneous
  Country: US (occurrence: US)
  Receive Date: 20220930
  Receipt Date: 20221014
  Transmission Date: 20230113
  Serious: Yes (Other)
  Sender: FDA-Public Use
  Company Number: US-TEVA-2022-US-2077474

PATIENT
  Sex: Female

DRUGS (1)
  1. QVAR REDIHALER [Suspect]
     Active Substance: BECLOMETHASONE DIPROPIONATE
     Indication: COVID-19
     Dosage: 80 MCG
     Route: 065

REACTIONS (9)
  - Blue toe syndrome [Unknown]
  - Asthma [Unknown]
  - Mental disorder [Unknown]
  - Anxiety [Unknown]
  - Vasoconstriction [Unknown]
  - Blood pressure increased [Unknown]
  - Cough [Unknown]
  - Pain [Unknown]
  - Product use in unapproved indication [Unknown]
